FAERS Safety Report 5342722-4 (Version None)
Quarter: 2007Q2

REPORT INFORMATION
  Report Type: 
  Country: None (occurrence: None)
  Receive Date: 20070416
  Receipt Date: 20070115
  Transmission Date: 20071010
  Serious: No
  Sender: FDA-Public Use
  Company Number: 2007SP000157

PATIENT
  Age: 83 Year
  Sex: Male
  Weight: 78.9259 kg

DRUGS (10)
  1. LUNESTA [Suspect]
     Indication: INSOMNIA
     Dosage: 3 MG;QW;ORAL
     Route: 048
     Dates: start: 20060701
  2. ASPIRIN [Concomitant]
  3. NAMENDA [Concomitant]
  4. VERAPAMIL [Concomitant]
  5. LASIX [Concomitant]
  6. PAXIL [Concomitant]
  7. GLUCOTROL [Concomitant]
  8. PERCOCET [Concomitant]
  9. MORPHINE [Concomitant]
  10. SIMVASTATIN [Concomitant]

REACTIONS (1)
  - INSOMNIA [None]
